FAERS Safety Report 5627561-9 (Version None)
Quarter: 2008Q1

REPORT INFORMATION
  Report Type: 
  Country: None (occurrence: None)
  Receive Date: 20080215
  Receipt Date: 20080102
  Transmission Date: 20080703
  Serious: No
  Sender: FDA-Public Use
  Company Number: A0701478A

PATIENT
  Sex: Male

DRUGS (1)
  1. COREG CR [Suspect]
     Indication: BLOOD PRESSURE
     Dosage: 80MG IN THE MORNING

REACTIONS (1)
  - DRUG INEFFECTIVE [None]
